FAERS Safety Report 6755759-5 (Version None)
Quarter: 2010Q2

REPORT INFORMATION
  Report Type: 
  Country: None (occurrence: None)
  Receive Date: 20100524
  Receipt Date: 20100226
  Transmission Date: 20101027
  Serious: No
  Sender: FDA-Public Use
  Company Number: 008130

PATIENT
  Sex: Male

DRUGS (1)
  1. CIMZIA [Suspect]
     Dosage: (400MG EVERY 2 WEEKS SUBCUTANEOUS)
     Route: 058

REACTIONS (2)
  - DIZZINESS [None]
  - NAUSEA [None]
